FAERS Safety Report 4963389-0 (Version None)
Quarter: 2006Q2

REPORT INFORMATION
  Report Type: 
  Country: None (occurrence: None)
  Receive Date: 20060404
  Receipt Date: 20060404
  Transmission Date: 20061013
  Serious: Yes (Hospitalization)
  Sender: FDA-Public Use
  Company Number: None

PATIENT
  Age: 89 Year
  Sex: Male

DRUGS (2)
  1. HYDROCHLOROTHIAZIDE [Suspect]
     Indication: HYPERTENSION
     Dosage: 25 MG PO QD
     Route: 048
  2. ENALPRIL [Suspect]
     Indication: HYPERTENSION
     Dosage: 5 MG PO QD
     Route: 048

REACTIONS (5)
  - ASTHENIA [None]
  - HYPOTENSION [None]
  - MENTAL STATUS CHANGES [None]
  - ORAL INTAKE REDUCED [None]
  - SYNCOPE [None]
